FAERS Safety Report 5149158-X (Version None)
Quarter: 2006Q4

REPORT INFORMATION
  Report Type: 
  Country: None (occurrence: None)
  Receive Date: 20061113
  Receipt Date: 20060817
  Transmission Date: 20070319
  Serious: No
  Sender: FDA-Public Use
  Company Number: US-GLAXOSMITHKLINE-A0617132A

PATIENT
  Age: 85 Year
  Sex: Female

DRUGS (5)
  1. COREG [Suspect]
     Indication: HYPERTENSION
     Route: 048
  2. SINGULAIR [Concomitant]
  3. ATACAND [Concomitant]
  4. NORVASC [Concomitant]
  5. OXYGEN [Concomitant]

REACTIONS (2)
  - FEELING ABNORMAL [None]
  - TREMOR [None]
